FAERS Safety Report 13376702 (Version 1)
Quarter: 2017Q1

REPORT INFORMATION
  Report Type: Spontaneous
  Country: US (occurrence: US)
  Receive Date: 20170327
  Receipt Date: 20170327
  Transmission Date: 20170429
  Serious: Yes (Other)
  Sender: FDA-Public Use
  Company Number: None

PATIENT
  Age: 3 Year
  Sex: Male
  Weight: 15.9 kg

DRUGS (1)
  1. MIRALAX [Suspect]
     Active Substance: POLYETHYLENE GLYCOL 3350
     Indication: CONSTIPATION
     Route: 048
     Dates: start: 20161101, end: 20170201

REACTIONS (5)
  - Onychophagia [None]
  - Retching [None]
  - Abnormal behaviour [None]
  - Haemorrhage [None]
  - Thumb sucking [None]

NARRATIVE: CASE EVENT DATE: 20170201
